FAERS Safety Report 24981872 (Version 1)
Quarter: 2025Q1

REPORT INFORMATION
  Report Type: Spontaneous
  Country: US (occurrence: US)
  Receive Date: 20250218
  Receipt Date: 20250218
  Transmission Date: 20250409
  Serious: No
  Sender: INCYTE
  Company Number: US-INCYTE CORPORATION-2025IN001395

PATIENT

DRUGS (1)
  1. JAKAFI [Suspect]
     Active Substance: RUXOLITINIB
     Indication: Disease susceptibility
     Dosage: 5 MILLIGRAM, BID
     Route: 048
     Dates: start: 20240201

REACTIONS (2)
  - Illness [Unknown]
  - Off label use [Unknown]
